FAERS Safety Report 8422829-5 (Version None)
Quarter: 2012Q2

REPORT INFORMATION
  Report Type: 
  Country: None (occurrence: None)
  Receive Date: 20120525
  Receipt Date: 20120516
  Transmission Date: 20120825
  Serious: Yes (Other)
  Sender: FDA-Public Use
  Company Number: 2012032369

PATIENT
  Age: 29 Month
  Sex: Male

DRUGS (4)
  1. PRIVIGEN [Suspect]
     Indication: KAWASAKI'S DISEASE
     Dosage: 2 G/KG, INTRAVENOUS (NOT OTHERWISE SPECIFIED)
     Route: 042
     Dates: start: 20120511, end: 20120515
  2. CEFUROXIME (FEUROXIME) [Concomitant]
  3. ASPIRIN [Concomitant]
  4. PAEDIALYTE (PAEDIALYTE) [Concomitant]

REACTIONS (4)
  - INFUSION RELATED REACTION [None]
  - RASH [None]
  - CHILLS [None]
  - TACHYCARDIA [None]
